FAERS Safety Report 21741920 (Version 1)
Quarter: 2022Q4

REPORT INFORMATION
  Report Type: Report from Study
  Country: TW (occurrence: TW)
  Receive Date: 20221216
  Receipt Date: 20221216
  Transmission Date: 20230113
  Serious: Yes (Death)
  Sender: FDA-Public Use
  Company Number: TW-MYLANLABS-2022M1136639

PATIENT
  Sex: Female
  Weight: 49 kg

DRUGS (4)
  1. FLUOROURACIL [Suspect]
     Active Substance: FLUOROURACIL
     Indication: Adenocarcinoma pancreas
     Dosage: 3000 MILLIGRAM/SQ. METER, CYCLE : A 48 H CONTINUOUS INFUSION, BIWEEKLY ON DAY 1 AND DAY..
     Route: 042
     Dates: start: 20170330, end: 20170630
  2. GEMCITABINE [Suspect]
     Active Substance: GEMCITABINE
     Indication: Adenocarcinoma pancreas
     Dosage: 800 MILLIGRAM/SQ. METER, CYCLE : 10MG/M2/MIN ADMINISTERED FOR OVER 80 MIN, BIWEEKL....
     Route: 042
     Dates: start: 20170330, end: 20170630
  3. OXALIPLATIN [Suspect]
     Active Substance: OXALIPLATIN
     Indication: Adenocarcinoma pancreas
     Dosage: 85 MILLIGRAM/SQ. METER, CYCLE : 85 MG/M2 FOR 2H, BIWEEKL...
     Route: 042
     Dates: start: 20170330, end: 20170630
  4. LEUCOVORIN [Concomitant]
     Active Substance: LEUCOVORIN
     Indication: Chemotherapy side effect prophylaxis
     Dosage: 150 MILLIGRAM/SQ. METER, CYCLE : ADMINISTERED BIWEEKLY ON DAY....
     Route: 042
     Dates: start: 20170330, end: 20170630

REACTIONS (1)
  - Sepsis [Fatal]
